FAERS Safety Report 5514298-X (Version None)
Quarter: 2007Q4

REPORT INFORMATION
  Report Type: 
  Country: None (occurrence: None)
  Receive Date: 20071113
  Receipt Date: 20071102
  Transmission Date: 20080405
  Serious: Yes (Hospitalization)
  Sender: FDA-Public Use
  Company Number: US-MERCK-0711USA01519

PATIENT
  Age: 82 Year
  Sex: Female

DRUGS (9)
  1. HYDRODIURIL [Suspect]
     Indication: HYPERTENSION
     Route: 048
  2. METOPROLOL [Concomitant]
     Indication: HYPERTENSION
     Route: 065
  3. ZOLOFT [Concomitant]
     Indication: ANXIETY
     Route: 065
  4. FEXOFENADINE HYDROCHLORIDE [Concomitant]
     Route: 065
  5. ASPIRIN [Concomitant]
     Route: 065
  6. ALBUTEROL [Concomitant]
     Route: 065
  7. RANITIDINE [Concomitant]
     Route: 065
  8. RISEDRONATE SODIUM [Concomitant]
     Route: 065
  9. FLUTICASONE FUROATE [Concomitant]
     Route: 065

REACTIONS (4)
  - FALL [None]
  - HEAD INJURY [None]
  - HYPONATRAEMIA [None]
  - INAPPROPRIATE ANTIDIURETIC HORMONE SECRETION [None]
